FAERS Safety Report 10265244 (Version 1)
Quarter: 2014Q2

REPORT INFORMATION
  Report Type: Spontaneous
  Country: US (occurrence: US)
  Receive Date: 20140627
  Receipt Date: 20140627
  Transmission Date: 20141212
  Serious: Yes (Other)
  Sender: FDA-Public Use
  Company Number: US-PFIZER INC-2014173494

PATIENT
  Sex: Female

DRUGS (1)
  1. FIBERCON [Suspect]
     Dosage: UNK

REACTIONS (2)
  - Choking [Unknown]
  - Product friable [Unknown]
